FAERS Safety Report 15827487 (Version 5)
Quarter: 2020Q1

REPORT INFORMATION
  Report Type: Report from Study
  Country: US (occurrence: US)
  Receive Date: 20190115
  Receipt Date: 20200211
  Transmission Date: 20200409
  Serious: Yes (Hospitalization, Other)
  Sender: FDA-Public Use
  Company Number: US-AMGEN-USANI2019004812

PATIENT
  Age: 62 Year
  Sex: Female

DRUGS (15)
  1. BLINATUMOMAB [Suspect]
     Active Substance: BLINATUMOMAB
     Dosage: UNK UNK, QD
     Route: 065
     Dates: start: 20150417
  2. DAPSONE. [Concomitant]
     Active Substance: DAPSONE
     Dosage: UNK
     Dates: start: 20150401, end: 20150403
  3. SLOW MAG [MAGNESIUM CHLORIDE] [Concomitant]
     Active Substance: MAGNESIUM CHLORIDE
     Dosage: UNK
     Dates: start: 20150407, end: 20150519
  4. TYLENOL [Concomitant]
     Active Substance: ACETAMINOPHEN
     Dosage: UNK
     Dates: start: 20150407, end: 20150409
  5. ZOFRAN [Concomitant]
     Active Substance: ONDANSETRON HYDROCHLORIDE
     Dosage: UNK
     Dates: start: 20140113, end: 20150511
  6. AVELOX [Concomitant]
     Active Substance: MOXIFLOXACIN HYDROCHLORIDE
     Dosage: UNK
     Dates: start: 20150409, end: 20150515
  7. BLINATUMOMAB [Suspect]
     Active Substance: BLINATUMOMAB
     Indication: ACUTE LYMPHOCYTIC LEUKAEMIA
     Dosage: 56 MICROGRAM, QD
     Route: 065
     Dates: start: 20150407
  8. PHOSLO [Concomitant]
     Active Substance: CALCIUM ACETATE
     Dosage: UNK
     Dates: start: 20150408, end: 20150417
  9. CEFEPIME [Concomitant]
     Active Substance: CEFEPIME HYDROCHLORIDE
     Dosage: UNK
     Dates: start: 20150409, end: 20150413
  10. ROCEPHIN [Concomitant]
     Active Substance: CEFTRIAXONE SODIUM
     Dosage: UNK
     Dates: start: 20150407, end: 20150407
  11. ZOVIRAX [Concomitant]
     Active Substance: ACYCLOVIR
     Dosage: UNK
     Dates: start: 20140113, end: 20150515
  12. VANCOMYCIN [Concomitant]
     Active Substance: VANCOMYCIN
     Dosage: UNK
     Dates: start: 20150407, end: 20150413
  13. DEXAMETHASONE. [Concomitant]
     Active Substance: DEXAMETHASONE
     Dosage: UNK
     Dates: start: 20150407, end: 20150512
  14. ELITEK [Concomitant]
     Active Substance: RASBURICASE
     Dosage: UNK
     Dates: start: 20150408, end: 20150408
  15. ALLOPURINOL. [Concomitant]
     Active Substance: ALLOPURINOL
     Dosage: UNK
     Dates: start: 20140113, end: 20150423

REACTIONS (2)
  - Aphasia [Recovered/Resolved]
  - Aphasia [Recovered/Resolved]

NARRATIVE: CASE EVENT DATE: 20150413
